FAERS Safety Report 6246129-7 (Version None)
Quarter: 2009Q2

REPORT INFORMATION
  Report Type: 
  Country: None (occurrence: None)
  Receive Date: 20090626
  Receipt Date: 20090327
  Transmission Date: 20091009
  Serious: No
  Sender: FDA-Public Use
  Company Number: A0775895A

PATIENT
  Sex: Female

DRUGS (5)
  1. IMITREX [Suspect]
     Indication: MIGRAINE
     Route: 048
  2. VYTORIN [Concomitant]
  3. PROTONIX [Concomitant]
  4. WEIGHT LOSS MEDICATION [Concomitant]
  5. BRONCHITIS MEDICATION [Concomitant]

REACTIONS (1)
  - DRUG INEFFECTIVE [None]
